FAERS Safety Report 21709082 (Version 1)
Quarter: 2022Q4

REPORT INFORMATION
  Report Type: Report from Study
  Country: US (occurrence: US)
  Receive Date: 20221210
  Receipt Date: 20221210
  Transmission Date: 20230113
  Serious: Yes (Hospitalization, Other)
  Sender: FDA-Public Use
  Company Number: US-TAKEDA-2022TUS093046

PATIENT
  Age: 45 Year
  Sex: Male

DRUGS (12)
  1. TEDUGLUTIDE [Suspect]
     Active Substance: TEDUGLUTIDE
     Indication: Short-bowel syndrome
     Dosage: 4.5 MILLIGRAM, QD
     Route: 042
     Dates: start: 20181205, end: 202006
  2. TEDUGLUTIDE [Suspect]
     Active Substance: TEDUGLUTIDE
     Indication: Short-bowel syndrome
     Dosage: 4.5 MILLIGRAM, QD
     Route: 042
     Dates: start: 20181205, end: 202006
  3. TEDUGLUTIDE [Suspect]
     Active Substance: TEDUGLUTIDE
     Indication: Short-bowel syndrome
     Dosage: 4.5 MILLIGRAM, QD
     Route: 042
     Dates: start: 20181205, end: 202006
  4. TEDUGLUTIDE [Suspect]
     Active Substance: TEDUGLUTIDE
     Indication: Short-bowel syndrome
     Dosage: 4.5 MILLIGRAM, QD
     Route: 042
     Dates: start: 20181205, end: 202006
  5. TEDUGLUTIDE [Suspect]
     Active Substance: TEDUGLUTIDE
     Dosage: 4.5 MILLIGRAM
     Route: 042
     Dates: start: 202006, end: 202107
  6. TEDUGLUTIDE [Suspect]
     Active Substance: TEDUGLUTIDE
     Dosage: 4.5 MILLIGRAM
     Route: 042
     Dates: start: 202006, end: 202107
  7. TEDUGLUTIDE [Suspect]
     Active Substance: TEDUGLUTIDE
     Dosage: 4.5 MILLIGRAM
     Route: 042
     Dates: start: 202006, end: 202107
  8. TEDUGLUTIDE [Suspect]
     Active Substance: TEDUGLUTIDE
     Dosage: 4.5 MILLIGRAM
     Route: 042
     Dates: start: 202006, end: 202107
  9. MICAFUNGIN [Concomitant]
     Active Substance: MICAFUNGIN
     Indication: Vascular device infection
     Dosage: UNK
     Route: 042
     Dates: start: 20180820, end: 20180822
  10. VANCOMYCIN [Concomitant]
     Active Substance: VANCOMYCIN
     Indication: Catheter removal
     Dosage: 1750 MILLIGRAM, BID
     Route: 042
     Dates: start: 20200923, end: 20200930
  11. VANCOMYCIN [Concomitant]
     Active Substance: VANCOMYCIN
     Indication: Vascular device infection
     Dosage: UNK
     Route: 042
     Dates: start: 20180818, end: 20180828
  12. KEFLEX [Concomitant]
     Active Substance: CEPHALEXIN
     Indication: Vascular device infection
     Dosage: 1 DOSAGE FORM, QID
     Route: 048
     Dates: start: 20211005, end: 20211010

REACTIONS (1)
  - Gastrointestinal motility disorder [Recovered/Resolved]

NARRATIVE: CASE EVENT DATE: 20220825
